FAERS Safety Report 4420965-1 (Version None)
Quarter: 2004Q2

REPORT INFORMATION
  Report Type: 
  Country: None (occurrence: None)
  Receive Date: 20040621
  Receipt Date: 20040220
  Transmission Date: 20050107
  Serious: No
  Sender: FDA-Public Use
  Company Number: A-US2004-05234

PATIENT
  Age: 76 Year
  Sex: Female

DRUGS (4)
  1. TRACLEER [Suspect]
     Indication: PULMONARY HYPERTENSION
     Dosage: 62.5 MG, BID, ORAL
     Route: 048
     Dates: start: 20040201
  2. OXYGEN (OXYGEN) [Concomitant]
  3. FOSAMAX [Concomitant]
  4. DITROPAN [Concomitant]

REACTIONS (3)
  - DERMATITIS [None]
  - LIVER FUNCTION TEST ABNORMAL [None]
  - PRURITUS [None]
